FAERS Safety Report 7921838-X (Version None)
Quarter: 2011Q4

REPORT INFORMATION
  Report Type: 
  Country: None (occurrence: None)
  Receive Date: 20111117
  Receipt Date: 20111111
  Transmission Date: 20120403
  Serious: Yes (Life-Threatening, Hospitalization)
  Sender: FDA-Public Use
  Company Number: US-AMGEN-USASP2011053682

PATIENT
  Age: 50 Year
  Sex: Female
  Weight: 77.2 kg

DRUGS (8)
  1. FILGRASTIM [Suspect]
     Indication: BREAST CANCER
     Dosage: 5 MUG/KG, PER CHEMO REGIM
     Route: 058
     Dates: start: 20080820, end: 20090319
  2. BEVACIZUMAB [Suspect]
     Indication: BREAST CANCER
     Dosage: 10 MG/KG, PER CHEMO REGIM
     Route: 042
     Dates: start: 20080820, end: 20081224
  3. ZIPRASIDONE HCL [Concomitant]
  4. DOXORUBICIN HCL [Suspect]
     Indication: BREAST CANCER
     Dosage: 60 MG/M2, PER CHEMO REGIM
     Route: 042
     Dates: start: 20080820, end: 20081008
  5. CYCLOPHOSPHAMIDE [Suspect]
     Indication: BREAST CANCER
     Dosage: 600 MG/M2, PER CHEMO REGIM
     Dates: start: 20080820, end: 20081008
  6. PEGFILGRASTIM [Suspect]
     Indication: BREAST CANCER
     Dosage: 6 MG, PER CHEMO REGIM
     Route: 058
     Dates: start: 20080820, end: 20080901
  7. TAMOXIFEN CITRATE [Concomitant]
  8. PACLITAXEL [Suspect]
     Indication: BREAST CANCER
     Dosage: 80 MG/M2, PER CHEMO REGIM
     Route: 042
     Dates: end: 20090107

REACTIONS (3)
  - ACUTE MYELOID LEUKAEMIA [None]
  - PLATELET COUNT DECREASED [None]
  - ANAEMIA [None]
